FAERS Safety Report 19971240 (Version 19)
Quarter: 2023Q2

REPORT INFORMATION
  Report Type: Spontaneous
  Country: CA (occurrence: CA)
  Receive Date: 20211020
  Receipt Date: 20230628
  Transmission Date: 20230721
  Serious: Yes (Other)
  Sender: FDA-Public Use
  Company Number: CA-CELLTRION INC.-2021CA010146

PATIENT

DRUGS (18)
  1. INFLECTRA [Suspect]
     Active Substance: INFLIXIMAB-DYYB
     Indication: Crohn^s disease
     Dosage: 5 MG/KG, AT 0, 2, 6 WEEKS THEN EVERY 8 WEEKS, INDUCTION WEEK 0 2 6 AND THEN EVERY 8 WEEKS
     Route: 042
     Dates: start: 20210706
  2. INFLECTRA [Suspect]
     Active Substance: INFLIXIMAB-DYYB
     Dosage: 5 MG/KG, AT 0, 2, 6 WEEKS THEN EVERY 8 WEEKS,DOSE ROUNDED TO NEAREST HUNDRED
     Route: 042
     Dates: start: 20210706
  3. INFLECTRA [Suspect]
     Active Substance: INFLIXIMAB-DYYB
     Dosage: 5 MG/KG, AT 0, 2, 6 WEEKS THEN EVERY 8 WEEKS
     Route: 042
     Dates: start: 20210813
  4. INFLECTRA [Suspect]
     Active Substance: INFLIXIMAB-DYYB
     Dosage: 5 MG/KG, AT 0, 2, 6 WEEKS THEN EVERY 8 WEEKS
     Route: 042
     Dates: start: 20211008
  5. INFLECTRA [Suspect]
     Active Substance: INFLIXIMAB-DYYB
     Dosage: 5 MG/KG, AT 0, 2, 6 WEEKS THEN EVERY 8 WEEKS
     Route: 042
     Dates: start: 20211203
  6. INFLECTRA [Suspect]
     Active Substance: INFLIXIMAB-DYYB
     Dosage: 5 MG/KG, AT 0, 2, 6 WEEKS THEN EVERY 8 WEEKS
     Route: 042
     Dates: start: 20220128
  7. INFLECTRA [Suspect]
     Active Substance: INFLIXIMAB-DYYB
     Dosage: 5 MG/KG, REINDUCTION AT WEEK 0, 2 AND 6, THEN EVERY 8 WEEKS
     Route: 042
  8. INFLECTRA [Suspect]
     Active Substance: INFLIXIMAB-DYYB
     Dosage: 5 MG/KG, REINDUCTION AT WEEK 0, 2 AND 6, THEN EVERY 8 WEEKS, DOSE ROUNDED TO NEAREST VIAL
     Route: 042
     Dates: start: 20220901
  9. INFLECTRA [Suspect]
     Active Substance: INFLIXIMAB-DYYB
     Dosage: 5 MG/KG, REINDUCTION AT WEEK 0, 2 AND 6, THEN EVERY 8 WEEKS, DOSE ROUNDED TO NEAREST VIAL
     Route: 042
     Dates: start: 20220912
  10. INFLECTRA [Suspect]
     Active Substance: INFLIXIMAB-DYYB
     Dosage: 5 MG/KG, REINDUCTION AT WEEK 0, 2 AND 6, THEN EVERY 8 WEEKS, DOSE ROUNDED TO NEAREST VIAL
     Route: 042
     Dates: start: 20221012
  11. INFLECTRA [Suspect]
     Active Substance: INFLIXIMAB-DYYB
     Dosage: 5 MG/KG, REINDUCTION AT WEEK 0, 2 AND 6, THEN EVERY 8 WEEKS, DOSE ROUNDED TO NEAREST VIAL
     Route: 042
     Dates: start: 20221207
  12. INFLECTRA [Suspect]
     Active Substance: INFLIXIMAB-DYYB
     Dosage: 5 MG/KG, REINDUCTION AT WEEK 0, 2 AND 6, THEN EVERY 8 WEEKS, DOSE ROUNDED TO NEAREST VIAL
     Route: 042
     Dates: start: 20230405
  13. INFLECTRA [Suspect]
     Active Substance: INFLIXIMAB-DYYB
     Dosage: 300 MG EVERY 8 WEEKS
     Dates: start: 20230601
  14. CALCIUM [Concomitant]
     Active Substance: CALCIUM
     Dosage: 1 DF, DOSAGE NOT AVAILABLE
     Route: 065
  15. CIPRO [Concomitant]
     Active Substance: CIPROFLOXACIN HYDROCHLORIDE
     Dosage: 1 DF, FOR 14 DAYS
     Route: 065
     Dates: start: 202207
  16. FERROUS SULFATE [Concomitant]
     Active Substance: FERROUS SULFATE
     Dosage: 1 DF, DOSAGE NOT AVAILABLE
     Route: 065
  17. FLAGYL [Concomitant]
     Active Substance: METRONIDAZOLE\METRONIDAZOLE HYDROCHLORIDE
     Dosage: 1 DF, FOR 14 DAYS
     Dates: start: 202207
  18. VITAMIN B12 [Concomitant]
     Active Substance: CYANOCOBALAMIN
     Dosage: 1 DF, DOSAGE NOT AVAILABLE
     Route: 065

REACTIONS (19)
  - Accident at work [Unknown]
  - Wound [Recovered/Resolved]
  - Anal abscess [Unknown]
  - Ileal stenosis [Unknown]
  - Therapeutic response shortened [Unknown]
  - Malaise [Not Recovered/Not Resolved]
  - Vomiting [Not Recovered/Not Resolved]
  - Nausea [Not Recovered/Not Resolved]
  - Anxiety disorder [Not Recovered/Not Resolved]
  - Discharge [Not Recovered/Not Resolved]
  - Proctalgia [Not Recovered/Not Resolved]
  - Pyrexia [Not Recovered/Not Resolved]
  - Condition aggravated [Not Recovered/Not Resolved]
  - Dizziness [Recovering/Resolving]
  - Fatigue [Not Recovered/Not Resolved]
  - Eating disorder [Recovering/Resolving]
  - Discomfort [Recovering/Resolving]
  - Off label use [Unknown]
  - Intentional product use issue [Unknown]

NARRATIVE: CASE EVENT DATE: 20210101
